FAERS Safety Report 9733602 (Version 2)
Quarter: 2013Q4

REPORT INFORMATION
  Report Type: Spontaneous
  Country: NG (occurrence: NG)
  Receive Date: 20131205
  Receipt Date: 20131210
  Transmission Date: 20140711
  Serious: Yes (Hospitalization, Other)
  Sender: FDA-Public Use
  Company Number: NG-GLAXOSMITHKLINE-B0950596A

PATIENT
  Age: 80 Year
  Sex: Male
  Weight: 75 kg

DRUGS (4)
  1. AVODART [Suspect]
     Indication: BENIGN PROSTATIC HYPERPLASIA
     Dosage: .5MG PER DAY
     Route: 048
     Dates: start: 20131118, end: 20131120
  2. TAMSULOSIN [Concomitant]
     Indication: LOWER URINARY TRACT SYMPTOMS
     Dosage: .4MG PER DAY
     Route: 048
     Dates: start: 201303
  3. AMLODIPINE [Concomitant]
     Indication: HYPERTENSION
     Route: 048
  4. HYDROCHLOROTHIAZIDE [Concomitant]
     Indication: HYPERTENSION
     Route: 048

REACTIONS (3)
  - Blister [Recovered/Resolved]
  - Pruritus [Recovered/Resolved]
  - Drug eruption [Recovered/Resolved]
